FAERS Safety Report 8975087 (Version 1)
Quarter: 2012Q4

REPORT INFORMATION
  Report Type: 
  Country: MX (occurrence: MX)
  Receive Date: 20121219
  Receipt Date: 20121219
  Transmission Date: 20130627
  Serious: Yes (Other)
  Sender: FDA-Public Use
  Company Number: MX-BAYER-2012-131156

PATIENT
  Sex: Female

DRUGS (2)
  1. BETAFERON [Suspect]
     Dosage: UNK
     Dates: start: 200508, end: 201209
  2. BETAFERON [Suspect]
     Dosage: UNK UNK, QOD
     Dates: start: 2012

REACTIONS (3)
  - Caesarean section [None]
  - Exposure during pregnancy [Recovered/Resolved]
  - Exposure during breast feeding [None]
